FAERS Safety Report 15785593 (Version 1)
Quarter: 2019Q1

REPORT INFORMATION
  Report Type: Spontaneous
  Country: US (occurrence: US)
  Receive Date: 20190102
  Receipt Date: 20190102
  Transmission Date: 20190417
  Serious: Yes (Hospitalization)
  Sender: FDA-Public Use
  Company Number: None

PATIENT
  Age: 68 Year
  Sex: Female

DRUGS (1)
  1. BREO ELLIPTA [Suspect]
     Active Substance: FLUTICASONE FUROATE\VILANTEROL TRIFENATATE
     Route: 055
     Dates: start: 20180923, end: 20181223

REACTIONS (5)
  - Drug ineffective [None]
  - Product use issue [None]
  - Dizziness [None]
  - Fall [None]
  - Multiple fractures [None]

NARRATIVE: CASE EVENT DATE: 20180920
